FAERS Safety Report 23526415 (Version 1)
Quarter: 2024Q1

REPORT INFORMATION
  Report Type: Spontaneous
  Country: US (occurrence: None)
  Receive Date: 20240214
  Receipt Date: 20240214
  Transmission Date: 20240410
  Serious: Yes (Life-Threatening)
  Sender: FDA-Public Use
  Company Number: None

PATIENT
  Age: 75 Year
  Sex: Male

DRUGS (1)
  1. ABIRATERONE [Suspect]
     Active Substance: ABIRATERONE
     Indication: Prostate cancer
     Dosage: FREQUENCY : 4 TIMES A DAY;?

REACTIONS (7)
  - Gastrointestinal haemorrhage [None]
  - Vomiting [None]
  - Faeces discoloured [None]
  - Discoloured vomit [None]
  - Therapy cessation [None]
  - Abdominal discomfort [None]
  - Refusal of treatment by patient [None]

NARRATIVE: CASE EVENT DATE: 20240201
